FAERS Safety Report 25487174 (Version 1)
Quarter: 2025Q2

REPORT INFORMATION
  Report Type: Spontaneous
  Country: TW (occurrence: TW)
  Receive Date: 20250627
  Receipt Date: 20250627
  Transmission Date: 20250717
  Serious: Yes (Hospitalization, Other)
  Sender: Steriscience PTE
  Company Number: TW-STERISCIENCE B.V.-2025-ST-001217

PATIENT
  Age: 30 Year
  Sex: Female

DRUGS (1)
  1. BUPIVACAINE [Suspect]
     Active Substance: BUPIVACAINE
     Indication: Anaesthesia
     Route: 037

REACTIONS (4)
  - Cauda equina syndrome [None]
  - Neurotoxicity [None]
  - Maternal exposure during delivery [Unknown]
  - Off label use [Unknown]
